FAERS Safety Report 19183340 (Version 1)
Quarter: 2021Q2

REPORT INFORMATION
  Report Type: Other
  Country: ES (occurrence: ES)
  Receive Date: 20210427
  Receipt Date: 20210427
  Transmission Date: 20210717
  Serious: Yes (Hospitalization, Other)
  Sender: FDA-Public Use
  Company Number: ES-APOTEX-2021AP010037

PATIENT
  Age: 91 Year
  Sex: Female

DRUGS (2)
  1. SEROXAT FILM?COATED TABLET [Suspect]
     Active Substance: PAROXETINE HYDROCHLORIDE
     Indication: DEPRESSION
     Dosage: 20 MG, QD(1 CP DIA)
     Route: 048
     Dates: start: 20201016, end: 20210315
  2. LEXATIN [BROMAZEPAM] [Suspect]
     Active Substance: BROMAZEPAM
     Indication: INSOMNIA
     Dosage: 1.5 MG, QD(0?0?1 )
     Route: 048
     Dates: start: 20201016, end: 20210315

REACTIONS (3)
  - Rhabdomyolysis [Recovered/Resolved]
  - Acute kidney injury [Recovered/Resolved]
  - Craniocerebral injury [Recovered/Resolved]

NARRATIVE: CASE EVENT DATE: 20210315
